FAERS Safety Report 4332058-2 (Version None)
Quarter: 2004Q2

REPORT INFORMATION
  Report Type: 
  Country: None (occurrence: None)
  Receive Date: 20040401
  Receipt Date: 20040401
  Transmission Date: 20050107
  Serious: Yes (Other)
  Sender: FDA-Public Use
  Company Number: None

PATIENT
  Age: 37 Year
  Sex: Female
  Weight: 73 kg

DRUGS (6)
  1. ONDANSETRON [Suspect]
     Indication: POST PROCEDURAL NAUSEA
     Dosage: 4 MG Q8 HOURS IV
     Route: 042
     Dates: start: 20040326, end: 20040326
  2. ONDANSETRON [Suspect]
     Indication: POST PROCEDURAL VOMITING
     Dosage: 4 MG Q8 HOURS IV
     Route: 042
     Dates: start: 20040326, end: 20040326
  3. FENTANYL [Concomitant]
  4. FAMOTIDINE [Concomitant]
  5. CEFEPIME [Concomitant]
  6. BUPIVACAINE [Concomitant]

REACTIONS (1)
  - DYSTONIA [None]
